FAERS Safety Report 7243191-X (Version None)
Quarter: 2011Q1

REPORT INFORMATION
  Report Type: 
  Country: None (occurrence: None)
  Receive Date: 20110125
  Receipt Date: 20110117
  Transmission Date: 20110831
  Serious: Yes (Other)
  Sender: FDA-Public Use
  Company Number: US-AMGEN-USASP2011003047

PATIENT
  Age: 61 Year
  Sex: Female

DRUGS (1)
  1. ENBREL [Suspect]
     Indication: RHEUMATOID ARTHRITIS
     Dosage: 25 MG, 2 TIMES/WK
     Dates: start: 20040101, end: 20110110

REACTIONS (7)
  - SWELLING FACE [None]
  - ERYTHEMA [None]
  - DRY SKIN [None]
  - RASH VESICULAR [None]
  - EAR DISCOMFORT [None]
  - RASH [None]
  - PRURITUS [None]
